FAERS Safety Report 18872820 (Version 1)
Quarter: 2021Q1

REPORT INFORMATION
  Report Type: Spontaneous
  Country: CZ (occurrence: CZ)
  Receive Date: 20210210
  Receipt Date: 20210210
  Transmission Date: 20210420
  Serious: Yes (Other)
  Sender: FDA-Public Use
  Company Number: NVSC2021CZ030096

PATIENT
  Age: 50 Year
  Sex: Female

DRUGS (1)
  1. METHOTREXATE. [Suspect]
     Active Substance: METHOTREXATE
     Indication: PSORIASIS
     Dosage: UNK
     Route: 065
     Dates: start: 2007, end: 2008

REACTIONS (2)
  - Liver disorder [Unknown]
  - Drug ineffective [Unknown]
